FAERS Safety Report 9098683 (Version 1)
Quarter: 2013Q1

REPORT INFORMATION
  Report Type: Spontaneous
  Country: ES (occurrence: ES)
  Receive Date: 20130213
  Receipt Date: 20130213
  Transmission Date: 20140127
  Serious: Yes (Other)
  Sender: FDA-Public Use
  Company Number: ES-BAYER-2013-016662

PATIENT
  Age: 34 Year
  Sex: Female

DRUGS (3)
  1. XARELTO [Suspect]
     Indication: THROMBOSIS PROPHYLAXIS
     Dosage: 20 MG, QD
     Route: 048
     Dates: start: 20121020
  2. ACETYLSALICYLIC ACID({=100 MG) [Interacting]
     Indication: THROMBOSIS PROPHYLAXIS
     Dosage: UNK
     Route: 065
     Dates: start: 2007
  3. LEVOTIROXINA [Concomitant]
     Dates: start: 2003

REACTIONS (5)
  - Menorrhagia [Recovered/Resolved]
  - Headache [Not Recovered/Not Resolved]
  - Malaise [Recovered/Resolved]
  - Abdominal pain upper [Not Recovered/Not Resolved]
  - Apathy [Recovered/Resolved]
